FAERS Safety Report 15163660 (Version 8)
Quarter: 2019Q2

REPORT INFORMATION
  Report Type: Report from Study
  Country: CA (occurrence: CA)
  Receive Date: 20180719
  Receipt Date: 20190611
  Transmission Date: 20190711
  Serious: Yes (Other)
  Sender: FDA-Public Use
  Company Number: CA-ROCHE-2143196

PATIENT
  Age: 64 Year
  Sex: Male

DRUGS (9)
  1. CLOBETASOL [Concomitant]
     Active Substance: CLOBETASOL
     Dosage: TARO
     Route: 065
  2. ESBRIET [Suspect]
     Active Substance: PIRFENIDONE
     Indication: IDIOPATHIC PULMONARY FIBROSIS
     Route: 048
     Dates: start: 20180326
  3. LACTAID [Concomitant]
     Active Substance: LACTASE
  4. XARELTO [Concomitant]
     Active Substance: RIVAROXABAN
  5. NYSTATIN. [Concomitant]
     Active Substance: NYSTATIN
  6. ESBRIET [Suspect]
     Active Substance: PIRFENIDONE
     Indication: IDIOPATHIC PULMONARY FIBROSIS
     Route: 048
     Dates: start: 20181107
  7. ESBRIET [Suspect]
     Active Substance: PIRFENIDONE
     Route: 048
     Dates: start: 20180730
  8. ESBRIET [Suspect]
     Active Substance: PIRFENIDONE
     Route: 065
     Dates: start: 200007
  9. PREDNISONE. [Concomitant]
     Active Substance: PREDNISONE
     Dosage: 6 DAYS LEFT (13MARCH2018)
     Route: 065

REACTIONS (6)
  - Diarrhoea [Recovered/Resolved]
  - Diarrhoea [Unknown]
  - Psoriasis [Not Recovered/Not Resolved]
  - Photosensitivity reaction [Unknown]
  - Diarrhoea [Recovered/Resolved]
  - Sunburn [Unknown]

NARRATIVE: CASE EVENT DATE: 20180604
